FAERS Safety Report 5042231-6 (Version None)
Quarter: 2006Q2

REPORT INFORMATION
  Report Type: 
  Country: None (occurrence: None)
  Receive Date: 20060627
  Receipt Date: 20060614
  Transmission Date: 20061013
  Serious: Yes (Hospitalization, Other)
  Sender: FDA-Public Use
  Company Number: B0428254A

PATIENT
  Age: 15 Year
  Sex: Female

DRUGS (2)
  1. AMOXIL [Suspect]
     Indication: PHARYNGITIS
  2. PHENOXYMETHYL PENICILLIN [Suspect]
     Indication: DRUG USE FOR UNKNOWN INDICATION

REACTIONS (11)
  - ARTERIAL OCCLUSIVE DISEASE [None]
  - ARTHRALGIA [None]
  - DRUG HYPERSENSITIVITY [None]
  - DRUG TOXICITY [None]
  - KIDNEY SMALL [None]
  - NEPHRITIS INTERSTITIAL [None]
  - RASH [None]
  - RASH MACULO-PAPULAR [None]
  - RENAL FAILURE ACUTE [None]
  - SCARLET FEVER [None]
  - THROMBOCYTOPENIA [None]
